FAERS Safety Report 11194427 (Version 1)
Quarter: 2015Q2

REPORT INFORMATION
  Report Type: Spontaneous
  Country: AU (occurrence: AU)
  Receive Date: 20150616
  Receipt Date: 20150616
  Transmission Date: 20150821
  Serious: Yes (Hospitalization)
  Sender: FDA-Public Use
  Company Number: AU-ALLERGAN-1511134US

PATIENT
  Age: 65 Year
  Sex: Female

DRUGS (2)
  1. BOTOX [Suspect]
     Active Substance: ONABOTULINUMTOXINA
     Indication: DERMATITIS CONTACT
     Dosage: 10 UNITS, SINGLE
     Route: 030
     Dates: start: 201411, end: 201411
  2. BOTOX [Suspect]
     Active Substance: ONABOTULINUMTOXINA
     Indication: SKIN WRINKLING

REACTIONS (8)
  - Removal of internal fixation [Unknown]
  - Off label use [Unknown]
  - Areflexia [Unknown]
  - Fatigue [Unknown]
  - Influenza like illness [Unknown]
  - Chest discomfort [Unknown]
  - Headache [Unknown]
  - Dysphagia [Unknown]

NARRATIVE: CASE EVENT DATE: 201412
